FAERS Safety Report 24446624 (Version 1)
Quarter: 2024Q4

REPORT INFORMATION
  Report Type: Spontaneous
  Country: US (occurrence: None)
  Receive Date: 20241016
  Receipt Date: 20241016
  Transmission Date: 20250114
  Serious: Yes (Other)
  Sender: Public
  Company Number: None

PATIENT
  Age: 34 Year
  Sex: Female
  Weight: 61.65 kg

DRUGS (12)
  1. ACETAMINOPHEN\OXYCODONE HYDROCHLORIDE [Suspect]
     Active Substance: ACETAMINOPHEN\OXYCODONE HYDROCHLORIDE
     Indication: Road traffic accident
     Dosage: OTHER QUANTITY : 1 TABLET(S);?OTHER FREQUENCY : AS NEEDED;?
     Route: 048
     Dates: start: 20230202
  2. TRAZODONE [Suspect]
     Active Substance: TRAZODONE HYDROCHLORIDE
  3. GRAPEFRUIT JUICE [Suspect]
     Active Substance: GRAPEFRUIT JUICE
  4. TRAZODONE [Concomitant]
     Active Substance: TRAZODONE HYDROCHLORIDE
  5. CONCERT [Concomitant]
  6. GABAPENTIN [Concomitant]
     Active Substance: GABAPENTIN
  7. METHOCARBAMOL [Concomitant]
     Active Substance: METHOCARBAMOL
  8. COLACE [Concomitant]
     Active Substance: DOCUSATE SODIUM
  9. VITAMIN D3 [Concomitant]
     Active Substance: CHOLECALCIFEROL
  10. ACETAMINOPHEN\OXYCODONE HYDROCHLORIDE [Concomitant]
     Active Substance: ACETAMINOPHEN\OXYCODONE HYDROCHLORIDE
  11. ZOFRAN [Concomitant]
     Active Substance: ONDANSETRON HYDROCHLORIDE
  12. VITAMINS [Concomitant]
     Active Substance: VITAMINS

REACTIONS (9)
  - Drug interaction [None]
  - Product label issue [None]
  - Hallucination [None]
  - Disorientation [None]
  - Gait disturbance [None]
  - Fall [None]
  - Injury [None]
  - Balance disorder [None]
  - Food interaction [None]

NARRATIVE: CASE EVENT DATE: 20240928
